FAERS Safety Report 20179895 (Version 1)
Quarter: 2021Q4

REPORT INFORMATION
  Report Type: Spontaneous
  Country: US (occurrence: None)
  Receive Date: 20211212
  Receipt Date: 20211212
  Transmission Date: 20220303
  Serious: Yes (Hospitalization, Other)
  Sender: FDA-Public Use
  Company Number: None

PATIENT
  Age: 35 Year
  Sex: Female
  Weight: 51.75 kg

DRUGS (1)
  1. RISPERDAL [Suspect]
     Active Substance: RISPERIDONE
     Indication: Product used for unknown indication
     Dates: start: 20180918, end: 20180920

REACTIONS (6)
  - Tremor [None]
  - Hyperhidrosis [None]
  - Palpitations [None]
  - Panic attack [None]
  - Anxiety [None]
  - Product prescribing issue [None]

NARRATIVE: CASE EVENT DATE: 20180918
